FAERS Safety Report 21156749 (Version 1)
Quarter: 2022Q3

REPORT INFORMATION
  Report Type: Spontaneous
  Country: CN (occurrence: CN)
  Receive Date: 20220801
  Receipt Date: 20220801
  Transmission Date: 20221027
  Serious: Yes (Hospitalization)
  Sender: FDA-Public Use
  Company Number: CN-UCBSA-2022042607

PATIENT
  Age: 26 Year
  Sex: Male
  Weight: 67 kg

DRUGS (5)
  1. CETIRIZINE HYDROCHLORIDE [Suspect]
     Active Substance: CETIRIZINE HYDROCHLORIDE
     Indication: Dermatitis contact
     Dosage: 1 DOSAGE FORM, ONCE DAILY (QD)
     Route: 048
     Dates: start: 20200929, end: 20201013
  2. DEXAMETHASONE SODIUM PHOSPHATE [Suspect]
     Active Substance: DEXAMETHASONE SODIUM PHOSPHATE
     Indication: Inflammation
     Dosage: 10 MILLIGRAM, ONCE DAILY (QD)
     Route: 042
     Dates: start: 20200929, end: 20201006
  3. DEXAMETHASONE SODIUM PHOSPHATE [Suspect]
     Active Substance: DEXAMETHASONE SODIUM PHOSPHATE
     Dosage: 5 MILLIGRAM, ONCE DAILY (QD)
     Route: 042
     Dates: start: 20201006, end: 20201009
  4. RABEPRAZOLE [Suspect]
     Active Substance: RABEPRAZOLE
     Indication: Hyperchlorhydria
     Dosage: 1 ENTERIC-COATED TABLET, ONCE DAILY (QD)
     Route: 048
     Dates: start: 20200929, end: 20201005
  5. DEXTROSE [Concomitant]
     Active Substance: DEXTROSE
     Indication: Product used for unknown indication
     Dosage: 100 MILLILITER, ONCE DAILY (QD)
     Route: 042
     Dates: start: 20201006, end: 20201009

REACTIONS (1)
  - Liver injury [Unknown]

NARRATIVE: CASE EVENT DATE: 20201008
